FAERS Safety Report 16713102 (Version 1)
Quarter: 2019Q3

REPORT INFORMATION
  Report Type: Spontaneous
  Country: JP (occurrence: JP)
  Receive Date: 20190817
  Receipt Date: 20190817
  Transmission Date: 20191004
  Serious: Yes (Hospitalization, Other)
  Sender: FDA-Public Use
  Company Number: JP-MICRO LABS LIMITED-ML2019-01916

PATIENT
  Age: 64 Year
  Sex: Female

DRUGS (1)
  1. LEVOFLOXACIN. [Suspect]
     Active Substance: LEVOFLOXACIN
     Indication: CYSTITIS
     Dosage: ORAL LEVOFLOXACIN 500 MG TABLET
     Route: 048

REACTIONS (2)
  - Encephalopathy [Recovered/Resolved]
  - Hyperventilation [Recovered/Resolved]
